FAERS Safety Report 18300228 (Version 3)
Quarter: 2021Q1

REPORT INFORMATION
  Report Type: Spontaneous
  Country: JP (occurrence: JP)
  Receive Date: 20200923
  Receipt Date: 20210122
  Transmission Date: 20210419
  Serious: Yes (Death, Disabling)
  Sender: FDA-Public Use
  Company Number: PHJP2019JP009222

PATIENT
  Age: 33 Year
  Sex: Male
  Weight: 61 kg

DRUGS (6)
  1. VOTRIENT [Suspect]
     Active Substance: PAZOPANIB HYDROCHLORIDE
     Dosage: 400 MG
     Route: 048
     Dates: start: 20180704, end: 20190207
  2. OXINORM [Concomitant]
     Indication: PAIN
     Dosage: 5 MG
     Route: 065
     Dates: start: 20181024, end: 20190304
  3. VOTRIENT [Suspect]
     Active Substance: PAZOPANIB HYDROCHLORIDE
     Indication: EWING^S SARCOMA
     Dosage: 200 MG
     Route: 048
     Dates: start: 20180411, end: 20180703
  4. OXINORM [Concomitant]
     Dosage: UNK
     Route: 065
  5. LOXONIN [Concomitant]
     Active Substance: LOXOPROFEN SODIUM
     Indication: PAIN
     Dosage: 60 MG
     Route: 065
     Dates: start: 20181003, end: 20190304
  6. NOVAMIN [Concomitant]
     Indication: NAUSEA
     Dosage: 5 MG
     Route: 065
     Dates: start: 20181109, end: 20190214

REACTIONS (11)
  - Malaise [Recovered/Resolved]
  - Ewing^s sarcoma [Fatal]
  - Muscular weakness [Unknown]
  - Respiratory failure [Fatal]
  - Gait disturbance [Unknown]
  - Metastases to lung [Fatal]
  - Fatigue [Fatal]
  - Monoparesis [Recovering/Resolving]
  - Product use in unapproved indication [Unknown]
  - Malignant neoplasm progression [Fatal]
  - Hepatic function abnormal [Recovered/Resolved]

NARRATIVE: CASE EVENT DATE: 20180420
